FAERS Safety Report 6492292-2 (Version None)
Quarter: 2009Q4

REPORT INFORMATION
  Report Type: 
  Country: None (occurrence: None)
  Receive Date: 20091214
  Receipt Date: 20091202
  Transmission Date: 20100525
  Serious: Yes (Life-Threatening, Hospitalization)
  Sender: FDA-Public Use
  Company Number: DE-SANOFI-AVENTIS-2009SA006138

PATIENT
  Age: 80 Year
  Sex: Female
  Weight: 52 kg

DRUGS (2)
  1. ARAVA [Suspect]
     Indication: RHEUMATOID ARTHRITIS
     Route: 048
     Dates: start: 20090904, end: 20090926
  2. PREDNISOLONE [Concomitant]
     Indication: RHEUMATOID ARTHRITIS
     Route: 048
     Dates: start: 20070101

REACTIONS (2)
  - HAEMOPTYSIS [None]
  - PNEUMONIA ASPIRATION [None]
